FAERS Safety Report 12068812 (Version 1)
Quarter: 2016Q1

REPORT INFORMATION
  Report Type: Spontaneous
  Country: BR (occurrence: BR)
  Receive Date: 20160211
  Receipt Date: 20160211
  Transmission Date: 20160526
  Serious: Yes (Other)
  Sender: FDA-Public Use
  Company Number: PHHY2016BR016866

PATIENT
  Sex: Female
  Weight: 130 kg

DRUGS (3)
  1. NEOTIAPIM [Suspect]
     Active Substance: QUETIAPINE
     Indication: DEPRESSION
  2. NEOTIAPIM [Suspect]
     Active Substance: QUETIAPINE
     Indication: SLEEP DISORDER
     Dosage: 100 MG, QD
     Route: 048
  3. NEOTIAPIM [Suspect]
     Active Substance: QUETIAPINE
     Indication: ANXIETY

REACTIONS (7)
  - Palpitations [Unknown]
  - Fatigue [Unknown]
  - Insomnia [Unknown]
  - Drug dependence [Not Recovered/Not Resolved]
  - Dyspnoea [Unknown]
  - Off label use [Not Recovered/Not Resolved]
  - Speech disorder [Unknown]
